FAERS Safety Report 8101893-7 (Version None)
Quarter: 2012Q1

REPORT INFORMATION
  Report Type: 
  Country: None (occurrence: None)
  Receive Date: 20120131
  Receipt Date: 20120125
  Transmission Date: 20120608
  Serious: Yes (Hospitalization, Other)
  Sender: FDA-Public Use
  Company Number: US-ALLERGAN-1201156US

PATIENT
  Age: 43 Year
  Sex: Female

DRUGS (1)
  1. LATISSE [Suspect]
     Indication: GROWTH OF EYELASHES
     Dosage: 2 GTT, QPM
     Route: 061
     Dates: start: 20110201, end: 20110701

REACTIONS (3)
  - PREMATURE RUPTURE OF MEMBRANES [None]
  - PREGNANCY [None]
  - PREMATURE BABY [None]
